FAERS Safety Report 11135799 (Version 1)
Quarter: 2015Q2

REPORT INFORMATION
  Report Type: Spontaneous
  Country: US (occurrence: US)
  Receive Date: 20150526
  Receipt Date: 20150526
  Transmission Date: 20150821
  Serious: No
  Sender: FDA-Public Use
  Company Number: US-BAYER-2015-262848

PATIENT
  Age: 53 Year
  Sex: Male
  Weight: 136 kg

DRUGS (2)
  1. CENTRUM SILVER [Concomitant]
     Active Substance: VITAMINS
  2. ALEVE [Suspect]
     Active Substance: NAPROXEN SODIUM
     Dosage: 2 DF, BID
     Route: 048

REACTIONS (1)
  - Extra dose administered [None]
